FAERS Safety Report 24977688 (Version 1)
Quarter: 2025Q1

REPORT INFORMATION
  Report Type: Spontaneous
  Country: US (occurrence: US)
  Receive Date: 20250217
  Receipt Date: 20250217
  Transmission Date: 20250409
  Serious: No
  Sender: BLUEPRINT MEDICINES
  Company Number: US-Blueprint Medicines Corporation-2025-AER-00294

PATIENT
  Age: 26 Year
  Sex: Female

DRUGS (9)
  1. AYVAKIT [Suspect]
     Active Substance: AVAPRITINIB
     Indication: Indolent systemic mastocytosis
     Route: 048
     Dates: start: 20240307
  2. Creon Oral [Concomitant]
     Indication: Product used for unknown indication
     Route: 048
  3. Desloratadine Oral [Concomitant]
     Indication: Product used for unknown indication
     Route: 048
  4. Hydroxychloroquine Sulfate Oral [Concomitant]
     Indication: Product used for unknown indication
     Route: 048
  5. Junel Fe 24 Oral [Concomitant]
     Indication: Product used for unknown indication
     Route: 048
  6. Medrol oral [Concomitant]
     Indication: Product used for unknown indication
     Route: 048
  7. Pepcid oral [Concomitant]
     Indication: Product used for unknown indication
     Route: 048
  8. Unithroid oral [Concomitant]
     Indication: Product used for unknown indication
     Route: 048
  9. Zofran oral [Concomitant]
     Indication: Product used for unknown indication
     Route: 048

REACTIONS (2)
  - Dry skin [Unknown]
  - Lip dry [Unknown]
